FAERS Safety Report 23538241 (Version 1)
Quarter: 2024Q1

REPORT INFORMATION
  Report Type: Spontaneous
  Country: CA (occurrence: CA)
  Receive Date: 20240219
  Receipt Date: 20240219
  Transmission Date: 20240410
  Serious: Yes (Other)
  Sender: FDA-Public Use
  Company Number: None

PATIENT
  Age: 56 Year
  Sex: Female

DRUGS (21)
  1. METHOTREXATE SODIUM [Suspect]
     Active Substance: METHOTREXATE SODIUM
     Indication: Cardiac sarcoidosis
     Dosage: 1 EVERY 1 WEEKS
     Route: 048
  2. SPIRONOLACTONE [Concomitant]
     Active Substance: SPIRONOLACTONE
  3. ACETAMINOPHEN [Concomitant]
     Active Substance: ACETAMINOPHEN
  4. AMIODARONE [Concomitant]
     Active Substance: AMIODARONE
  5. APIXABAN [Concomitant]
     Active Substance: APIXABAN
  6. ATORVASTATIN [Concomitant]
     Active Substance: ATORVASTATIN
  7. BISOPROLOL [Concomitant]
     Active Substance: BISOPROLOL\BISOPROLOL FUMARATE
  8. CLONAZEPAM [Concomitant]
     Active Substance: CLONAZEPAM
  9. CLOTRIMAZOLE [Concomitant]
     Active Substance: CLOTRIMAZOLE
  10. DENOSUMAB [Concomitant]
     Active Substance: DENOSUMAB
     Dosage: SOLUTION SUBCUTANEOUS
  11. FOLIC ACID [Concomitant]
     Active Substance: FOLIC ACID
     Route: 048
  12. FUROSEMIDE [Concomitant]
     Active Substance: FUROSEMIDE
  13. FERROUS SULFATE ANHYDROUS [Concomitant]
     Active Substance: FERROUS SULFATE ANHYDROUS
  14. LEVOTHYROXINE SODIUM [Concomitant]
     Active Substance: LEVOTHYROXINE SODIUM
  15. MEXILETINE [Concomitant]
     Active Substance: MEXILETINE
  16. NITROGLYCERIN [Concomitant]
     Active Substance: NITROGLYCERIN
  17. VALSARTAN [Concomitant]
     Active Substance: VALSARTAN
  18. PANTOPRAZOLE [Concomitant]
     Active Substance: PANTOPRAZOLE
  19. PREDNISONE [Concomitant]
     Active Substance: PREDNISONE
     Dosage: 1 EVERY 1 DAY
     Route: 048
  20. METHOTREXATE SODIUM [Suspect]
     Active Substance: METHOTREXATE SODIUM
     Indication: Cardiac sarcoidosis
     Dosage: 1 EVERY 1 WEEKS
     Route: 048
  21. METHOTREXATE SODIUM [Suspect]
     Active Substance: METHOTREXATE SODIUM
     Indication: Cardiac sarcoidosis
     Dosage: 1 EVERY 1 WEEKS
     Route: 048

REACTIONS (3)
  - Alopecia [Unknown]
  - Lower respiratory tract infection [Unknown]
  - Off label use [Unknown]
